FAERS Safety Report 18638342 (Version 1)
Quarter: 2020Q4

REPORT INFORMATION
  Report Type: Report from Study
  Country: US (occurrence: US)
  Receive Date: 20201218
  Receipt Date: 20201218
  Transmission Date: 20210114
  Serious: No
  Sender: FDA-Public Use
  Company Number: US-REGENERON PHARMACEUTICALS, INC.-2020-84725

PATIENT

DRUGS (6)
  1. EYLEA [Suspect]
     Active Substance: AFLIBERCEPT
     Indication: DIABETIC RETINAL OEDEMA
     Dosage: 2 MG, EVERY MONTH, LEFT EYE
     Route: 031
     Dates: start: 20200519, end: 20200519
  2. EYLEA [Suspect]
     Active Substance: AFLIBERCEPT
     Dosage: 2 MG, EVERY MONTH, RIGHT EYE
     Route: 031
     Dates: start: 20200527, end: 20200527
  3. EYLEA [Suspect]
     Active Substance: AFLIBERCEPT
     Indication: DIABETIC RETINOPATHY
     Dosage: 2 MG, EVERY MONTH IN BOTH EYES
     Route: 031
     Dates: start: 20190503
  4. EYLEA [Suspect]
     Active Substance: AFLIBERCEPT
     Dosage: 2 MG, EVERY MONTH LEFT EYE
     Route: 031
     Dates: start: 20201007, end: 20201007
  5. EYLEA [Suspect]
     Active Substance: AFLIBERCEPT
     Dosage: 2 MG, RIGHT EYE EVERY 2 MONTHS
     Route: 031
     Dates: start: 20201015, end: 20201015
  6. EYLEA [Suspect]
     Active Substance: AFLIBERCEPT
     Dosage: 2 MG, RIGHT EYE EVERY 2 MONTHS
     Route: 031
     Dates: start: 20201015, end: 20201015

REACTIONS (1)
  - Product dose omission issue [Unknown]

NARRATIVE: CASE EVENT DATE: 20200616
